FAERS Safety Report 8287669-9 (Version None)
Quarter: 2012Q2

REPORT INFORMATION
  Report Type: 
  Country: None (occurrence: None)
  Receive Date: 20120416
  Receipt Date: 20120413
  Transmission Date: 20120825
  Serious: Yes (Death)
  Sender: FDA-Public Use
  Company Number: PHHY2012NL012068

PATIENT
  Sex: Male

DRUGS (7)
  1. ZOMETA [Suspect]
     Dosage: 4 MG/ 100 ML ONCE PER 28 DAYS
     Dates: start: 20111206
  2. ZOMETA [Suspect]
     Indication: METASTASES TO BONE
     Dosage: 4 MG/ 100 ML ONCE PER 28 DAYS
     Dates: start: 20101105
  3. ZOMETA [Suspect]
     Dosage: 4 MG/ 5 ML ONCE IN EVERY 4 WEEKS
     Dates: start: 20101026
  4. CALCIUM CARBONATE [Concomitant]
  5. ZOMETA [Suspect]
     Dosage: 4 MG/ 100 ML ONCE PER 28 DAYS
     Dates: start: 20120104
  6. DIURETICS [Concomitant]
  7. VITAMIN D [Concomitant]

REACTIONS (3)
  - POST PROCEDURAL COMPLICATION [None]
  - ANORECTAL DISCOMFORT [None]
  - NERVOUS SYSTEM DISORDER [None]
